FAERS Safety Report 10249458 (Version 2)
Quarter: 2014Q2

REPORT INFORMATION
  Report Type: Report from Study
  Country: FR (occurrence: FR)
  Receive Date: 20140620
  Receipt Date: 20140620
  Transmission Date: 20141212
  Serious: Yes (Hospitalization)
  Sender: FDA-Public Use
  Company Number: FR-DSJP-DSM-2013-00932

PATIENT
  Sex: 0

DRUGS (1)
  1. ALTEISDUO [Suspect]
     Indication: HYPERTENSION
     Route: 048
     Dates: start: 2009, end: 20130822

REACTIONS (6)
  - Intestinal mucosal atrophy [Recovered/Resolved]
  - Diarrhoea [Recovered/Resolved]
  - Metabolic acidosis [Recovered/Resolved]
  - Hypokalaemia [Recovered/Resolved]
  - Vomiting [Recovered/Resolved]
  - Abdominal pain [Recovered/Resolved]
